FAERS Safety Report 19666268 (Version 4)
Quarter: 2022Q1

REPORT INFORMATION
  Report Type: Spontaneous
  Country: US (occurrence: US)
  Receive Date: 20210806
  Receipt Date: 20220310
  Transmission Date: 20220423
  Serious: Yes (Hospitalization)
  Sender: FDA-Public Use
  Company Number: US-CYCLE PHARMACEUTICALS LTD-2021-CYC-000025

PATIENT
  Sex: Female

DRUGS (3)
  1. NITYR [Suspect]
     Active Substance: NITISINONE
     Indication: Product used for unknown indication
     Dosage: 4 MG, QD
     Route: 048
  2. NITYR [Suspect]
     Active Substance: NITISINONE
     Dosage: 2 MG, BID
     Route: 048
  3. NITYR [Suspect]
     Active Substance: NITISINONE
     Dosage: 6 MG, QD
     Route: 048

REACTIONS (3)
  - Respiratory disorder [Recovered/Resolved]
  - Disease recurrence [Recovered/Resolved]
  - Product dose omission issue [Recovered/Resolved]
